FAERS Safety Report 8906859 (Version 1)
Quarter: 2012Q4

REPORT INFORMATION
  Report Type: 
  Country: US (occurrence: US)
  Receive Date: 20121114
  Receipt Date: 20121114
  Transmission Date: 20130627
  Serious: Yes (Hospitalization)
  Sender: FDA-Public Use
  Company Number: US-BAYER-2012-117940

PATIENT
  Age: 45 Year
  Sex: Female
  Weight: 65.76 kg

DRUGS (9)
  1. YASMIN [Suspect]
  2. WELLBUTRIN [Concomitant]
  3. IBUPROFEN [Concomitant]
     Dosage: UNK
     Dates: start: 20071017
  4. ASPIRIN [Concomitant]
     Dosage: 81 mg, UNK
     Route: 048
     Dates: start: 20071017
  5. FLUCONAZOLE [Concomitant]
     Dosage: 150 mg, UNK
     Route: 048
     Dates: start: 20071017
  6. BUPROPION [Concomitant]
     Dosage: 25 mg, daily
  7. MICROGESTIN [Concomitant]
  8. ESTROGEN [Concomitant]
  9. NORETHINDRONE [Concomitant]

REACTIONS (2)
  - Pulmonary embolism [None]
  - Off label use [None]
